FAERS Safety Report 10086222 (Version 1)
Quarter: 2014Q2

REPORT INFORMATION
  Report Type: Spontaneous
  Country: US (occurrence: None)
  Receive Date: 20140417
  Receipt Date: 20140417
  Transmission Date: 20141212
  Serious: No
  Sender: FDA-Public Use
  Company Number: None

PATIENT
  Age: 28 Year
  Sex: Male
  Weight: 65.77 kg

DRUGS (1)
  1. CHANTIX [Suspect]
     Indication: SMOKING CESSATION THERAPY
     Dosage: 1 PILL ,EVERY MORNING.
     Route: 048
     Dates: start: 20140415

REACTIONS (4)
  - Loss of consciousness [None]
  - Paranoia [None]
  - Vomiting [None]
  - Hypersomnia [None]
